FAERS Safety Report 9119903 (Version 2)
Quarter: 2013Q3

REPORT INFORMATION
  Report Type: Spontaneous
  Country: US (occurrence: US)
  Receive Date: 20130226
  Receipt Date: 20130725
  Transmission Date: 20140515
  Serious: Yes (Hospitalization)
  Sender: FDA-Public Use
  Company Number: US-BAYER-2013-022700

PATIENT
  Age: 36 Year
  Sex: Female
  Weight: 117.91 kg

DRUGS (4)
  1. YAZ [Suspect]
     Indication: CONTRACEPTION
     Dosage: UNK
     Dates: start: 201006
  2. ADVIL [Concomitant]
  3. EXCEDRIN EXTRA STRENGTH [Concomitant]
     Indication: HEADACHE
  4. ALEVE [Concomitant]
     Dosage: VERY LONG TIME

REACTIONS (12)
  - Intracranial venous sinus thrombosis [None]
  - Cerebrovascular accident [None]
  - Injury [None]
  - Pain [None]
  - General physical health deterioration [None]
  - Emotional distress [None]
  - Fear of disease [None]
  - Pain [None]
  - Vomiting [None]
  - Hyperhidrosis [None]
  - Headache [None]
  - Blindness [None]
